FAERS Safety Report 6141141-0 (Version None)
Quarter: 2009Q2

REPORT INFORMATION
  Report Type: 
  Country: None (occurrence: None)
  Receive Date: 20090402
  Receipt Date: 20090324
  Transmission Date: 20091009
  Serious: Yes (Hospitalization)
  Sender: FDA-Public Use
  Company Number: FR-PFIZER INC-2009188255

PATIENT

DRUGS (1)
  1. TAHOR [Suspect]
     Route: 048
     Dates: start: 20081201, end: 20090210

REACTIONS (1)
  - OEDEMATOUS PANCREATITIS [None]
